FAERS Safety Report 19513363 (Version 1)
Quarter: 2021Q3

REPORT INFORMATION
  Report Type: Report from Study
  Country: US (occurrence: US)
  Receive Date: 20210709
  Receipt Date: 20210709
  Transmission Date: 20211014
  Serious: Yes (Life-Threatening, Hospitalization, Other)
  Sender: FDA-Public Use
  Company Number: NVSC2021US152085

PATIENT
  Age: 12 Year
  Sex: Female
  Weight: 50.1 kg

DRUGS (24)
  1. CALCIUM [Concomitant]
     Active Substance: CALCIUM
     Dosage: 1200 MG
     Route: 065
     Dates: start: 20161020
  2. LORATADINE. [Concomitant]
     Active Substance: LORATADINE
     Indication: HYPERSENSITIVITY
     Dosage: 10 MG
     Route: 065
     Dates: start: 2011
  3. FERROUS SULFATE. [Concomitant]
     Active Substance: FERROUS SULFATE
     Dosage: 650 MG
     Route: 065
     Dates: start: 20151217
  4. CALCIUM [Concomitant]
     Active Substance: CALCIUM
     Indication: OSTEOPENIA
     Dosage: 1200 MG
     Route: 065
     Dates: start: 2011
  5. CARAFATE [Concomitant]
     Active Substance: SUCRALFATE
     Indication: PRODUCT USED FOR UNKNOWN INDICATION
     Dosage: UNK
     Route: 065
  6. ILARIS [Suspect]
     Active Substance: CANAKINUMAB
     Indication: STILL^S DISEASE
     Dosage: 180 MG
     Route: 065
     Dates: start: 20130531, end: 201506
  7. SANDIMMUN NEORAL [Suspect]
     Active Substance: CYCLOSPORINE
     Dosage: UNK
     Route: 065
     Dates: start: 20160527
  8. KINERET [Suspect]
     Active Substance: ANAKINRA
     Dosage: UNK
     Route: 065
     Dates: start: 20160529, end: 20160625
  9. SANDIMMUN NEORAL [Suspect]
     Active Substance: CYCLOSPORINE
     Dosage: 100 MG
     Route: 065
     Dates: start: 20150924
  10. KINERET [Suspect]
     Active Substance: ANAKINRA
     Indication: HAEMOPHAGOCYTIC LYMPHOHISTIOCYTOSIS
     Dosage: 20 MG
     Route: 065
     Dates: start: 20110919, end: 20130527
  11. PROGRAF [Suspect]
     Active Substance: TACROLIMUS
     Indication: STILL^S DISEASE
     Dosage: 1.6 MG
     Route: 048
     Dates: start: 201504, end: 201507
  12. VYVANSE [Concomitant]
     Active Substance: LISDEXAMFETAMINE DIMESYLATE
     Dosage: 40 MG
     Route: 065
     Dates: start: 20140812
  13. NORDITROPIN [Concomitant]
     Active Substance: SOMATROPIN
     Indication: GROWTH DISORDER
     Dosage: 1.4 MG
     Route: 065
     Dates: start: 20140707, end: 20160815
  14. VYVANSE [Concomitant]
     Active Substance: LISDEXAMFETAMINE DIMESYLATE
     Indication: ATTENTION DEFICIT HYPERACTIVITY DISORDER
     Dosage: 40 MG
     Route: 065
     Dates: start: 2011
  15. FERROUS SULFATE. [Concomitant]
     Active Substance: FERROUS SULFATE
     Indication: ANAEMIA
     Dosage: 325 MG
     Route: 065
     Dates: start: 20151217
  16. FLUCONAZOLE. [Concomitant]
     Active Substance: FLUCONAZOLE
     Indication: CANDIDA INFECTION
  17. SANDIMMUN NEORAL [Suspect]
     Active Substance: CYCLOSPORINE
     Indication: STILL^S DISEASE
     Dosage: 70 MG
     Route: 065
     Dates: start: 201311, end: 201504
  18. SANDIMMUN NEORAL [Suspect]
     Active Substance: CYCLOSPORINE
     Dosage: UNK
     Route: 065
     Dates: start: 20160802
  19. SANDIMMUN NEORAL [Suspect]
     Active Substance: CYCLOSPORINE
     Dosage: 50 MG
     Route: 065
     Dates: start: 20160815
  20. KINERET [Suspect]
     Active Substance: ANAKINRA
     Indication: STILL^S DISEASE
     Dosage: 100 MG
     Route: 065
     Dates: start: 20151013
  21. LISINOPRIL. [Concomitant]
     Active Substance: LISINOPRIL
     Indication: HYPERTENSION
     Dosage: 10 MG
     Route: 065
     Dates: start: 20160818
  22. IMMUNE GLOBULIN (IMMUNOGLOBULINS NOS) [Suspect]
     Active Substance: IMMUNE GLOBULIN NOS
     Indication: STILL^S DISEASE
     Dosage: 70 G
     Route: 042
     Dates: start: 201603, end: 20160527
  23. FLUCONAZOLE. [Concomitant]
     Active Substance: FLUCONAZOLE
     Indication: INFECTION
     Dosage: 200 MG
     Route: 065
     Dates: start: 20160804, end: 20160825
  24. LORATADINE. [Concomitant]
     Active Substance: LORATADINE
     Dosage: 10 MG
     Route: 065
     Dates: start: 20150918

REACTIONS (12)
  - Oedema peripheral [Unknown]
  - Transaminases increased [Unknown]
  - Haemophagocytic lymphohistiocytosis [Recovered/Resolved]
  - Back pain [Unknown]
  - Anaemia [Not Recovered/Not Resolved]
  - Thrombocytopenia [Unknown]
  - Infection [Recovered/Resolved]
  - Skin disorder [Unknown]
  - Haemorrhage [Recovered/Resolved]
  - Fatigue [Unknown]
  - Illness [Recovering/Resolving]
  - Product use in unapproved indication [Unknown]

NARRATIVE: CASE EVENT DATE: 20160531
